FAERS Safety Report 13158868 (Version 1)
Quarter: 2017Q1

REPORT INFORMATION
  Report Type: Spontaneous
  Country: JP (occurrence: JP)
  Receive Date: 20170127
  Receipt Date: 20170127
  Transmission Date: 20170428
  Serious: Yes (Hospitalization)
  Sender: FDA-Public Use
  Company Number: JP-LANNETT COMPANY, INC.-JP-2017LAN000420

PATIENT
  Age: 44 Year
  Sex: Male

DRUGS (4)
  1. RIFAMPIN. [Suspect]
     Active Substance: RIFAMPIN
     Indication: TUBERCULOSIS
     Dosage: 600 MG/DAY FOR 2 MONTHS INDUCTION THEN 4 MONTHS MAINTENANCE
  2. ISONIAZID (50 + 100 MG) [Suspect]
     Active Substance: ISONIAZID
     Indication: TUBERCULOSIS
     Dosage: 300 MG/DAY  2 MONTHS INDUCTION THEN 4 MONTHS MAINTENANCE
  3. ETHAMBUTOL [Suspect]
     Active Substance: ETHAMBUTOL HYDROCHLORIDE
     Indication: TUBERCULOSIS
     Dosage: 1000 MG/DAY
  4. PYRAZINAMIDE. [Suspect]
     Active Substance: PYRAZINAMIDE
     Indication: TUBERCULOSIS
     Dosage: 1200 MG/DAY

REACTIONS (2)
  - Pulmonary mass [Recovered/Resolved]
  - Paradoxical drug reaction [Recovered/Resolved]
